FAERS Safety Report 7754500-7 (Version None)
Quarter: 2011Q3

REPORT INFORMATION
  Report Type: 
  Country: None (occurrence: None)
  Receive Date: 20110915
  Receipt Date: 20110907
  Transmission Date: 20111222
  Serious: Yes (Hospitalization)
  Sender: FDA-Public Use
  Company Number: US-US-EMD SERONO, INC.-7082011

PATIENT
  Sex: Female

DRUGS (1)
  1. REBIF [Suspect]
     Indication: MULTIPLE SCLEROSIS
     Route: 058
     Dates: start: 20100211

REACTIONS (5)
  - RESTLESSNESS [None]
  - INSOMNIA [None]
  - MULTIPLE SCLEROSIS [None]
  - ANGER [None]
  - VISUAL IMPAIRMENT [None]
